FAERS Safety Report 6662159-5 (Version None)
Quarter: 2010Q1

REPORT INFORMATION
  Report Type: 
  Country: None (occurrence: None)
  Receive Date: 20100329
  Receipt Date: 20100317
  Transmission Date: 20100710
  Serious: Yes (Other)
  Sender: FDA-Public Use
  Company Number: 232125J10USA

PATIENT
  Age: 41 Year
  Sex: Female

DRUGS (2)
  1. REBIF [Suspect]
     Dosage: SUBCATANEOUS
     Route: 058
     Dates: start: 20050429, end: 20100101
  2. ADVIL LIQUI-GELS [Concomitant]

REACTIONS (3)
  - BIOPSY THYROID GLAND ABNORMAL [None]
  - GOITRE [None]
  - THYROIDECTOMY [None]
